FAERS Safety Report 12753989 (Version 2)
Quarter: 2017Q1

REPORT INFORMATION
  Report Type: Spontaneous
  Country: DE (occurrence: DE)
  Receive Date: 20160916
  Receipt Date: 20170316
  Transmission Date: 20170428
  Serious: Yes (Hospitalization)
  Sender: FDA-Public Use
  Company Number: DE-ASTRAZENECA-2016SE96534

PATIENT
  Age: 65 Year
  Sex: Female

DRUGS (6)
  1. QUETIAPINE FUMARATE. [Suspect]
     Active Substance: QUETIAPINE FUMARATE
     Indication: AFFECTIVE DISORDER
     Dosage: 600.0MG UNKNOWN
     Route: 048
     Dates: start: 20160715, end: 20160809
  2. LORAZEPAM. [Concomitant]
     Active Substance: LORAZEPAM
     Indication: AFFECTIVE DISORDER
     Route: 048
     Dates: start: 20160715, end: 20160802
  3. ESCITALOPRAM [Concomitant]
     Active Substance: ESCITALOPRAM OXALATE
     Indication: AFFECTIVE DISORDER
     Dosage: 10.0MG UNKNOWN
     Route: 048
     Dates: start: 20160713, end: 20160802
  4. VIGANTOLETTEN [Concomitant]
     Active Substance: CHOLECALCIFEROL
     Indication: OSTEOPOROSIS
     Dosage: 1000.0IU UNKNOWN
     Route: 048
  5. PANTOPRAZOLE [Concomitant]
     Active Substance: PANTOPRAZOLE SODIUM
     Indication: CHRONIC GASTRITIS
     Dosage: 20.0MG UNKNOWN
     Route: 048
     Dates: start: 201606
  6. QUETIAPINE FUMARATE. [Suspect]
     Active Substance: QUETIAPINE FUMARATE
     Indication: AFFECTIVE DISORDER
     Route: 048

REACTIONS (2)
  - Hepatotoxicity [Recovering/Resolving]
  - Jaundice [Recovering/Resolving]

NARRATIVE: CASE EVENT DATE: 20160809
